FAERS Safety Report 12111141 (Version 1)
Quarter: 2016Q1

REPORT INFORMATION
  Report Type: Spontaneous
  Country: US (occurrence: US)
  Receive Date: 20160224
  Receipt Date: 20160224
  Transmission Date: 20160526
  Serious: No
  Sender: FDA-Public Use
  Company Number: US-GILEAD-2016-0199771

PATIENT
  Age: 60 Year
  Sex: Male

DRUGS (2)
  1. HARVONI [Suspect]
     Active Substance: LEDIPASVIR\SOFOSBUVIR
     Indication: HEPATITIS C
     Dosage: 1 DF, UNK
     Route: 065
     Dates: end: 201602
  2. RIBAVIRIN. [Concomitant]
     Active Substance: RIBAVIRIN
     Indication: HEPATITIS C
     Dosage: UNK
     Route: 065
     Dates: end: 201602

REACTIONS (7)
  - Libido decreased [Recovering/Resolving]
  - Arthritis [Recovering/Resolving]
  - Fatigue [Recovering/Resolving]
  - Bone pain [Recovering/Resolving]
  - Sleep disorder [Recovering/Resolving]
  - Influenza like illness [Recovering/Resolving]
  - Constipation [Recovering/Resolving]
